FAERS Safety Report 10418073 (Version 1)
Quarter: 2014Q2

REPORT INFORMATION
  Report Type: Spontaneous
  Country: US (occurrence: None)
  Receive Date: 20140609
  Receipt Date: 20140609
  Transmission Date: 20141212
  Serious: No
  Sender: FDA-Public Use
  Company Number: 2014TUS001250

PATIENT
  Age: 53 Year
  Sex: Female
  Weight: 90 kg

DRUGS (5)
  1. BRINTELLIX [Suspect]
     Indication: BIPOLAR DISORDER
     Route: 048
     Dates: start: 20131122, end: 20131220
  2. BRINTELLIX [Suspect]
     Indication: DEPRESSION
     Route: 048
     Dates: start: 20131122, end: 20131220
  3. CLONAZEPAM [Concomitant]
  4. VITAMIN D (ERGOCALCIFEROL) [Concomitant]
  5. FISH OIL [Concomitant]

REACTIONS (2)
  - Headache [None]
  - Neck pain [None]
